FAERS Safety Report 9408066 (Version 1)
Quarter: 2013Q3

REPORT INFORMATION
  Report Type: Spontaneous
  Country: CA (occurrence: CA)
  Receive Date: 20130718
  Receipt Date: 20130718
  Transmission Date: 20140515
  Serious: Yes (Hospitalization, Other)
  Sender: FDA-Public Use
  Company Number: CA-AMGEN-CANSP2010006781

PATIENT
  Age: 61 Year
  Sex: Female
  Weight: 75.69 kg

DRUGS (14)
  1. ENBREL [Suspect]
     Indication: RHEUMATOID ARTHRITIS
     Dosage: 50 MG, QWK
     Route: 065
     Dates: start: 20090126
  2. METHOTREXATE [Concomitant]
     Dosage: UNK
  3. SYNTHROID [Concomitant]
     Dosage: .075 MG, UNK
  4. MOBICOX [Concomitant]
     Dosage: UNK
  5. AMITRIPTYLINE [Concomitant]
     Dosage: UNK
  6. TYLENOL ARTHRITIS [Concomitant]
     Dosage: UNK UNK, QID
  7. CALCIUM [Concomitant]
     Dosage: UNK
  8. MAGNESIUM [Concomitant]
     Dosage: UNK
  9. GLUCOSAMINE [Concomitant]
     Dosage: UNK
  10. PROBIOTIC [Concomitant]
     Dosage: UNK
  11. OMEGA 3-6-9 [Concomitant]
     Dosage: UNK
  12. HORMONES AND RELATED AGENTS [Concomitant]
     Dosage: UNK
  13. COLD                               /00014501/ [Concomitant]
     Dosage: UNK
  14. LEUCOVORIN                         /00566701/ [Concomitant]
     Dosage: UNK

REACTIONS (18)
  - Spinal decompression [Recovered/Resolved]
  - Chronic sinusitis [Not Recovered/Not Resolved]
  - Nodule [Recovered/Resolved]
  - Bladder operation [Recovered/Resolved]
  - Rheumatoid arthritis [Unknown]
  - Injection site bruising [Recovered/Resolved]
  - Nausea [Recovered/Resolved]
  - Condition aggravated [Recovered/Resolved]
  - Laceration [Unknown]
  - Impaired healing [Unknown]
  - Cystitis [Recovered/Resolved]
  - Injection site pain [Recovered/Resolved]
  - Injection site erythema [Recovered/Resolved]
  - Injection site urticaria [Recovered/Resolved]
  - Injection site pruritus [Recovered/Resolved]
  - Injection site warmth [Recovered/Resolved]
  - Pneumonia [Not Recovered/Not Resolved]
  - Infection [Unknown]
